FAERS Safety Report 9660386 (Version 2)
Quarter: 2013Q4

REPORT INFORMATION
  Report Type: Spontaneous
  Country: US (occurrence: US)
  Receive Date: 20131031
  Receipt Date: 20131031
  Transmission Date: 20140711
  Serious: No
  Sender: FDA-Public Use
  Company Number: US-PURDUE-USA-2010-0044871

PATIENT
  Age: 33 Year
  Sex: Female

DRUGS (1)
  1. OXYCONTIN TABLETS [Suspect]
     Indication: PAIN
     Dosage: 80 MG, TID
     Route: 048
     Dates: start: 1998

REACTIONS (8)
  - Wrong technique in drug usage process [Not Recovered/Not Resolved]
  - Dysphagia [Not Recovered/Not Resolved]
  - Product coating issue [Not Recovered/Not Resolved]
  - Product quality issue [Unknown]
  - Vomiting [Recovered/Resolved]
  - Product taste abnormal [Not Recovered/Not Resolved]
  - Product odour abnormal [Unknown]
  - Abdominal discomfort [Not Recovered/Not Resolved]
